FAERS Safety Report 17992688 (Version 1)
Quarter: 2020Q3

REPORT INFORMATION
  Report Type: Other
  Country: US (occurrence: US)
  Receive Date: 20200708
  Receipt Date: 20200708
  Transmission Date: 20201103
  Serious: Yes (Hospitalization)
  Sender: FDA-Public Use
  Company Number: US-INTERCEPT-PM2020001384

PATIENT
  Sex: Female
  Weight: 78.01 kg

DRUGS (16)
  1. VITAMIN D3 [Concomitant]
     Active Substance: CHOLECALCIFEROL
  2. CALCIUM [Concomitant]
     Active Substance: CALCIUM
  3. URSODIOL. [Concomitant]
     Active Substance: URSODIOL
  4. MAGNESIUM [Concomitant]
     Active Substance: MAGNESIUM
  5. MULTIVITAMINS                      /00116001/ [Concomitant]
     Active Substance: VITAMINS
  6. LACTULOSE. [Concomitant]
     Active Substance: LACTULOSE
  7. ASPIRIN                            /00002701/ [Concomitant]
     Active Substance: ASPIRIN
  8. BETA CAROTENE. [Concomitant]
     Active Substance: BETA CAROTENE
  9. VITAMIN B12 [Concomitant]
     Active Substance: CYANOCOBALAMIN
  10. VITAMIN C [Concomitant]
     Active Substance: ASCORBIC ACID
  11. FISH OIL [Concomitant]
     Active Substance: FISH OIL
  12. LEVOTHYROXINE SODIUM. [Concomitant]
     Active Substance: LEVOTHYROXINE SODIUM
  13. OCALIVA [Suspect]
     Active Substance: OBETICHOLIC ACID
     Indication: PRIMARY BILIARY CHOLANGITIS
     Dosage: 5 MG, QD
     Route: 048
     Dates: start: 20200325
  14. XIFAXAN [Concomitant]
     Active Substance: RIFAXIMIN
  15. PRAVASTATIN SODIUM. [Concomitant]
     Active Substance: PRAVASTATIN SODIUM
  16. FUROSEMIDE. [Concomitant]
     Active Substance: FUROSEMIDE

REACTIONS (1)
  - Liver disorder [Unknown]

NARRATIVE: CASE EVENT DATE: 2020
